FAERS Safety Report 22389559 (Version 1)
Quarter: 2023Q2

REPORT INFORMATION
  Report Type: Report from Study
  Country: US (occurrence: None)
  Receive Date: 20230531
  Receipt Date: 20230531
  Transmission Date: 20230721
  Serious: Yes (Hospitalization, Other)
  Sender: FDA-Public Use
  Company Number: US-ROCHE-2333601

PATIENT
  Age: 66 Year
  Sex: Male
  Weight: 78.088 kg

DRUGS (6)
  1. ATEZOLIZUMAB [Suspect]
     Active Substance: ATEZOLIZUMAB
     Indication: Transitional cell carcinoma metastatic
     Route: 041
     Dates: start: 20190520
  2. MYCOPHENOLATE MOFETIL [Suspect]
     Active Substance: MYCOPHENOLATE MOFETIL
     Indication: Transitional cell carcinoma metastatic
     Route: 048
     Dates: start: 20190629
  3. FISH OIL [Concomitant]
     Active Substance: FISH OIL
     Route: 048
  4. CLARITIN [Concomitant]
     Active Substance: LORATADINE
     Route: 048
  5. LORAZEPAM [Concomitant]
     Active Substance: LORAZEPAM
     Indication: Anxiety
     Dates: start: 20180605
  6. SIMETHICONE (DIMETHICONE) [Concomitant]
     Active Substance: DIMETHICONE
     Indication: Dyspepsia
     Route: 048
     Dates: start: 20190604, end: 20190604

REACTIONS (4)
  - Immune-mediated hepatitis [Recovered/Resolved]
  - Aspartate aminotransferase increased [Recovered/Resolved]
  - Alanine aminotransferase increased [Recovered/Resolved]
  - Blood bilirubin increased [Recovered/Resolved]

NARRATIVE: CASE EVENT DATE: 20190605
